FAERS Safety Report 8605953-3 (Version None)
Quarter: 2012Q3

REPORT INFORMATION
  Report Type: 
  Country: None (occurrence: None)
  Receive Date: 20120820
  Receipt Date: 20120815
  Transmission Date: 20120928
  Serious: Yes (Hospitalization)
  Sender: FDA-Public Use
  Company Number: US-ROCHE-1093604

PATIENT
  Sex: Female

DRUGS (2)
  1. ZELBORAF [Suspect]
     Dosage: RESTARTED
     Dates: start: 20120731
  2. ZELBORAF [Suspect]
     Indication: THYROID CANCER
     Dosage: DATE OF LAST DOSE: 23/JUL/2012, DOSE INTERRUPTED
     Dates: start: 20120628, end: 20120724

REACTIONS (1)
  - DYSPHAGIA [None]
